FAERS Safety Report 4448024-2 (Version None)
Quarter: 2004Q3

REPORT INFORMATION
  Report Type: 
  Country: None (occurrence: None)
  Receive Date: 20040823
  Receipt Date: 20030903
  Transmission Date: 20050211
  Serious: Yes (Hospitalization)
  Sender: FDA-Public Use
  Company Number: K200301457

PATIENT
  Age: 46 Year
  Sex: Female
  Weight: 75.3 kg

DRUGS (2)
  1. SEPTRA [Suspect]
     Indication: URINARY TRACT INFECTION
     Dates: start: 20030730, end: 20030730
  2. WELLBUTRIN [Concomitant]

REACTIONS (1)
  - ANAPHYLACTIC REACTION [None]
